FAERS Safety Report 20565035 (Version 1)
Quarter: 2022Q1

REPORT INFORMATION
  Report Type: Report from Study
  Country: US (occurrence: None)
  Receive Date: 20220308
  Receipt Date: 20220308
  Transmission Date: 20220423
  Serious: No
  Sender: FDA-Public Use
  Company Number: US-Spark Therapeutics, Inc.-US-SPK-19-00040

PATIENT
  Age: 5 Year
  Sex: Female

DRUGS (10)
  1. LUXTURNA [Suspect]
     Active Substance: VORETIGENE NEPARVOVEC-RZYL
     Indication: Leber^s congenital amaurosis
     Dosage: TO THE RIGHT EYE
     Dates: start: 20190718, end: 20190718
  2. LUXTURNA [Suspect]
     Active Substance: VORETIGENE NEPARVOVEC-RZYL
     Dosage: TO THE LEFT EYE
     Dates: start: 20190725, end: 20190725
  3. LUXTURNA [Suspect]
     Active Substance: VORETIGENE NEPARVOVEC-RZYL
     Indication: Retinitis pigmentosa
     Dosage: TO THE RIGHT EYE
     Dates: start: 20190718, end: 20190718
  4. LUXTURNA [Suspect]
     Active Substance: VORETIGENE NEPARVOVEC-RZYL
     Dosage: TO THE LEFT EYE
     Dates: start: 20190725, end: 20190725
  5. ATROPINE [Concomitant]
     Active Substance: ATROPINE
     Indication: Prophylaxis
     Route: 061
     Dates: start: 20190718, end: 20190724
  6. ATROPINE [Concomitant]
     Active Substance: ATROPINE
     Route: 061
     Dates: start: 20190725, end: 20190731
  7. TOBRADEX [Concomitant]
     Active Substance: DEXAMETHASONE\TOBRAMYCIN
     Indication: Prophylaxis
     Route: 061
     Dates: start: 20190718, end: 20190724
  8. TOBRADEX [Concomitant]
     Active Substance: DEXAMETHASONE\TOBRAMYCIN
     Route: 061
     Dates: start: 20190725, end: 20190731
  9. PREDNISOLONE ACETATE [Concomitant]
     Active Substance: PREDNISOLONE ACETATE
     Indication: Prophylaxis
     Route: 061
     Dates: start: 20190725
  10. PREDNISOLONE [Concomitant]
     Active Substance: PREDNISOLONE
     Indication: Prophylaxis
     Route: 048
     Dates: start: 20190715, end: 20190807

REACTIONS (2)
  - Retinal depigmentation [Not Recovered/Not Resolved]
  - Retinal haemorrhage [Recovered/Resolved]

NARRATIVE: CASE EVENT DATE: 20190725
